FAERS Safety Report 20584417 (Version 2)
Quarter: 2022Q1

REPORT INFORMATION
  Report Type: Other
  Country: US (occurrence: None)
  Receive Date: 20220311
  Receipt Date: 20220313
  Transmission Date: 20220424
  Serious: Yes (Death)
  Sender: FDA-Public Use
  Company Number: US-ROCHE-3039276

PATIENT
  Age: 78 Year
  Sex: Female

DRUGS (2)
  1. TECENTRIQ [Suspect]
     Active Substance: ATEZOLIZUMAB
     Indication: Lung neoplasm malignant
     Dosage: INFUSE 1200MG INTRAVENOUSLY EVERY 3 WEEK(S) OVER 60 MIN FOR FIRST DOSE AND OVER 30 MIN AFTER THAT
     Route: 042
     Dates: start: 20220103
  2. TECENTRIQ [Suspect]
     Active Substance: ATEZOLIZUMAB
     Indication: White blood cell count decreased

REACTIONS (2)
  - Death [Fatal]
  - White blood cell count decreased [Unknown]

NARRATIVE: CASE EVENT DATE: 20220215
